FAERS Safety Report 14502157 (Version 1)
Quarter: 2018Q1

REPORT INFORMATION
  Report Type: Spontaneous
  Country: US (occurrence: US)
  Receive Date: 20180208
  Receipt Date: 20180208
  Transmission Date: 20180509
  Serious: No
  Sender: FDA-Public Use
  Company Number: US-LUNDBECK-DKLU2040593

PATIENT
  Age: 76 Year
  Sex: Male

DRUGS (2)
  1. CARBIDOPA LEVODOPA [Suspect]
     Active Substance: CARBIDOPA\LEVODOPA
     Indication: PRODUCT USED FOR UNKNOWN INDICATION
     Route: 065
  2. NORTHERA [Suspect]
     Active Substance: DROXIDOPA
     Indication: PARKINSON^S DISEASE
     Route: 048
     Dates: start: 20170815

REACTIONS (2)
  - Tremor [Unknown]
  - Confusional state [Unknown]

NARRATIVE: CASE EVENT DATE: 20171120
